FAERS Safety Report 14473577 (Version 1)
Quarter: 2018Q1

REPORT INFORMATION
  Report Type: Spontaneous
  Country: US (occurrence: US)
  Receive Date: 20180131
  Receipt Date: 20180131
  Transmission Date: 20180509
  Serious: No
  Sender: FDA-Public Use
  Company Number: None

PATIENT
  Age: 73 Year
  Sex: Male

DRUGS (13)
  1. AMPYRA [Suspect]
     Active Substance: DALFAMPRIDINE
     Indication: MULTIPLE SCLEROSIS
     Route: 048
     Dates: start: 201101
  2. SIMVASTATIN. [Concomitant]
     Active Substance: SIMVASTATIN
  3. BIOTIN [Concomitant]
     Active Substance: BIOTIN
  4. OXYBUTYNIN. [Concomitant]
     Active Substance: OXYBUTYNIN CHLORIDE
  5. VOLTAREN TOP GEL [Concomitant]
  6. MODAFINIL. [Concomitant]
     Active Substance: MODAFINIL
  7. LEVOTHYROXINE. [Concomitant]
     Active Substance: LEVOTHYROXINE
  8. TERAZOSIN [Concomitant]
     Active Substance: TERAZOSIN\TERAZOSIN HYDROCHLORIDE
  9. AVONEX [Concomitant]
     Active Substance: INTERFERON BETA-1A
  10. IBUPROFEN. [Concomitant]
     Active Substance: IBUPROFEN
  11. PLANT STANOL ESTER [Concomitant]
  12. BACLOFEN. [Concomitant]
     Active Substance: BACLOFEN
  13. VITAMIN D3 [Concomitant]
     Active Substance: CHOLECALCIFEROL

REACTIONS (2)
  - Blood thyroid stimulating hormone abnormal [None]
  - Full blood count abnormal [None]

NARRATIVE: CASE EVENT DATE: 20180116
